FAERS Safety Report 6537377-7 (Version None)
Quarter: 2010Q1

REPORT INFORMATION
  Report Type: 
  Country: None (occurrence: None)
  Receive Date: 20100114
  Receipt Date: 20100105
  Transmission Date: 20100710
  Serious: Yes (Hospitalization, Other)
  Sender: FDA-Public Use
  Company Number: US-AMGEN-QUU358878

PATIENT
  Sex: Male
  Weight: 78.1 kg

DRUGS (14)
  1. ARANESP [Suspect]
     Indication: RENAL FAILURE CHRONIC
  2. UNSPECIFIED MEDICATION [Suspect]
     Route: 048
     Dates: start: 20090318, end: 20090501
  3. COLCHICINE [Concomitant]
     Route: 048
  4. PREDNISONE [Concomitant]
     Route: 048
  5. ASPIRIN [Concomitant]
     Route: 048
  6. HECTORAL [Concomitant]
     Route: 048
  7. MULTIPLE VITAMIN [Concomitant]
     Route: 048
  8. PRILOSEC [Concomitant]
     Route: 048
  9. COREG [Concomitant]
     Route: 048
  10. LASIX [Concomitant]
     Route: 048
  11. DIOVAN [Concomitant]
     Route: 048
  12. LIPITOR [Concomitant]
     Route: 048
  13. LANTUS [Concomitant]
  14. HUMULIN R [Concomitant]

REACTIONS (5)
  - ATRIAL FIBRILLATION [None]
  - CARDIAC FAILURE [None]
  - GOUT [None]
  - INTERNATIONAL NORMALISED RATIO INCREASED [None]
  - RASH [None]
